FAERS Safety Report 21486385 (Version 1)
Quarter: 2022Q4

REPORT INFORMATION
  Report Type: Spontaneous
  Country: DK (occurrence: DK)
  Receive Date: 20221020
  Receipt Date: 20221020
  Transmission Date: 20230112
  Serious: Yes (Life-Threatening, Hospitalization)
  Sender: FDA-Public Use
  Company Number: DK-PFIZER INC-PV202200086067

PATIENT
  Age: 54 Year
  Sex: Female
  Weight: 72 kg

DRUGS (1)
  1. INFLIXIMAB [Suspect]
     Active Substance: INFLIXIMAB
     Indication: Pyoderma gangrenosum
     Dosage: 5 MG/KG (LATEST INJECTION GIVEN ON 03 OCT 2022.STRENGTH: 100 MG)
     Route: 042
     Dates: start: 20211006

REACTIONS (5)
  - Cyanosis [Recovered/Resolved]
  - Somnolence [Recovered/Resolved]
  - Methaemoglobinaemia [Recovered/Resolved]
  - Oxygen saturation decreased [Recovered/Resolved]
  - Off label use [Unknown]

NARRATIVE: CASE EVENT DATE: 20221003
